FAERS Safety Report 11045225 (Version 1)
Quarter: 2015Q2

REPORT INFORMATION
  Report Type: Spontaneous
  Country: DE (occurrence: DE)
  Receive Date: 20150417
  Receipt Date: 20150417
  Transmission Date: 20150821
  Serious: Yes (Other)
  Sender: FDA-Public Use
  Company Number: DE-AMGEN-DEUSP2015036582

PATIENT
  Sex: Male

DRUGS (1)
  1. XGEVA [Suspect]
     Active Substance: DENOSUMAB
     Indication: METASTASES TO BONE
     Dosage: UNK UNK, UNK
     Route: 065
     Dates: start: 2014

REACTIONS (2)
  - Jaw disorder [Unknown]
  - Osteonecrosis of jaw [Unknown]

NARRATIVE: CASE EVENT DATE: 201411
